FAERS Safety Report 11327894 (Version 3)
Quarter: 2015Q4

REPORT INFORMATION
  Report Type: Spontaneous
  Country: DK (occurrence: IT)
  Receive Date: 20150731
  Receipt Date: 20151022
  Transmission Date: 20160304
  Serious: Yes (Hospitalization)
  Sender: FDA-Public Use
  Company Number: IT-FRI-1000078566

PATIENT
  Age: 21 Year
  Sex: Female

DRUGS (1)
  1. ESCITALOPRAM [Suspect]
     Active Substance: ESCITALOPRAM OXALATE
     Indication: INTENTIONAL SELF-INJURY
     Dosage: OVERDOSE: 120 MG
     Route: 048
     Dates: start: 20150505, end: 20150505

REACTIONS (5)
  - Euphoric mood [Recovered/Resolved]
  - Agitation [Recovered/Resolved]
  - Dissociation [Recovered/Resolved]
  - Intentional self-injury [Unknown]
  - Intentional overdose [Unknown]

NARRATIVE: CASE EVENT DATE: 20150505
